FAERS Safety Report 21499099 (Version 1)
Quarter: 2022Q4

REPORT INFORMATION
  Report Type: Spontaneous
  Country: US (occurrence: None)
  Receive Date: 20221022
  Receipt Date: 20221022
  Transmission Date: 20230113
  Serious: Yes (Life-Threatening, Disabling)
  Sender: FDA-Public Use
  Company Number: None

PATIENT
  Age: 49 Year
  Sex: Female

DRUGS (4)
  1. NIFEDIPINE [Suspect]
     Active Substance: NIFEDIPINE
     Dates: start: 20221021, end: 20221022
  2. TIROSINT [Concomitant]
     Active Substance: LEVOTHYROXINE SODIUM
  3. gabapantin [Concomitant]
  4. MAGNESIUM [Concomitant]
     Active Substance: MAGNESIUM

REACTIONS (9)
  - Headache [None]
  - Palpitations [None]
  - Dizziness [None]
  - Nausea [None]
  - Muscle spasms [None]
  - Peripheral swelling [None]
  - Headache [None]
  - Feeling hot [None]
  - Chills [None]

NARRATIVE: CASE EVENT DATE: 20221022
